FAERS Safety Report 19778081 (Version 1)
Quarter: 2021Q3

REPORT INFORMATION
  Report Type: Spontaneous
  Country: US (occurrence: US)
  Receive Date: 20210831
  Receipt Date: 20210831
  Transmission Date: 20211014
  Serious: Yes (Hospitalization)
  Sender: FDA-Public Use
  Company Number: None

PATIENT
  Age: 64 Year
  Sex: Female

DRUGS (1)
  1. DIMETHYL FUMARATE 240 MG  MYLAN [Suspect]
     Active Substance: DIMETHYL FUMARATE
     Indication: MULTIPLE SCLEROSIS
     Route: 048
     Dates: start: 20210212

REACTIONS (1)
  - Pneumonia aspiration [None]

NARRATIVE: CASE EVENT DATE: 202106
